FAERS Safety Report 19812764 (Version 1)
Quarter: 2021Q3

REPORT INFORMATION
  Report Type: Spontaneous
  Country: US (occurrence: US)
  Receive Date: 20210907
  Receipt Date: 20210907
  Transmission Date: 20211014
  Serious: No
  Sender: FDA-Public Use
  Company Number: None

PATIENT
  Age: 68 Year
  Sex: Male

DRUGS (2)
  1. APIXABAN (APIXABAN 5MG TAB) [Suspect]
     Active Substance: APIXABAN
     Indication: ATRIAL FIBRILLATION
     Route: 048
     Dates: start: 20180206
  2. UNSPECIFIED INGREDIENT [Suspect]
     Active Substance: UNSPECIFIED INGREDIENT
     Indication: STENT PLACEMENT
     Route: 048
     Dates: start: 20170619

REACTIONS (7)
  - Haematemesis [None]
  - Vomiting [None]
  - Nausea [None]
  - Loss of consciousness [None]
  - Anaemia [None]
  - Dieulafoy^s vascular malformation [None]
  - Gastric haemorrhage [None]

NARRATIVE: CASE EVENT DATE: 20210705
